FAERS Safety Report 9090808 (Version 1)
Quarter: 2013Q1

REPORT INFORMATION
  Report Type: Report from Study
  Country: US (occurrence: US)
  Receive Date: 20130130
  Receipt Date: 20130130
  Transmission Date: 20140127
  Serious: No
  Sender: FDA-Public Use
  Company Number: US-ABBOTT-12P-163-0979326-00

PATIENT
  Age: 47 Year
  Sex: Female

DRUGS (4)
  1. HUMIRA [Suspect]
     Indication: ANKYLOSING SPONDYLITIS
     Dosage: INITIAL DOSE
     Dates: start: 20120901
  2. DUREZOL [Concomitant]
     Indication: EYE DISORDER
     Dosage: DAILY
  3. PREDNISOLONE [Concomitant]
     Indication: EYE DISORDER
     Dosage: DAILY
  4. COMBIGAN [Concomitant]
     Indication: EYE DISORDER
     Dosage: DAILY

REACTIONS (1)
  - Headache [Recovering/Resolving]
